FAERS Safety Report 5202713-0 (Version None)
Quarter: 2006Q4

REPORT INFORMATION
  Report Type: 
  Country: None (occurrence: None)
  Receive Date: 20061018
  Receipt Date: 20050404
  Transmission Date: 20070319
  Serious: Yes (Other)
  Sender: FDA-Public Use
  Company Number: PHEH2004US12277

PATIENT
  Age: 47 Year
  Sex: Female

DRUGS (21)
  1. ZOMETA [Suspect]
     Indication: METASTASES TO BONE
     Dosage: 4 MG EVERY 4 WEEKS, INFUSION
     Dates: start: 20030319, end: 20041101
  2. TAXOL [Concomitant]
  3. CARBOPLATIN [Concomitant]
  4. ADRIAMYCIN PFS [Concomitant]
  5. CISPLATIN [Concomitant]
  6. IFOSFAMIDE [Concomitant]
  7. FLOVENT [Concomitant]
  8. COMBIVENT [Concomitant]
  9. OXYCODONE HCL [Concomitant]
  10. METOCLOPRAMIDE [Concomitant]
  11. ESTAZOLAM [Concomitant]
  12. LASIX [Concomitant]
  13. KEPPRA [Concomitant]
  14. PROCHLORPERAZINE MALEATE [Concomitant]
  15. ALPRAZOLAM [Concomitant]
  16. DILANTIN [Concomitant]
  17. PROTONIX [Concomitant]
  18. OXYCONTIN [Concomitant]
  19. LACTULOSE [Concomitant]
  20. CELEBREX [Concomitant]
  21. STOOL SOFTENER (DOCUSATE SODIUM) [Concomitant]

REACTIONS (8)
  - BONE DISORDER [None]
  - DENTAL CARIES [None]
  - GINGIVAL SWELLING [None]
  - JAW DISORDER [None]
  - TOOTH ABSCESS [None]
  - TOOTH EXTRACTION [None]
  - TOOTHACHE [None]
  - WOUND DEBRIDEMENT [None]
